FAERS Safety Report 6842048-3 (Version None)
Quarter: 2010Q3

REPORT INFORMATION
  Report Type: 
  Country: None (occurrence: None)
  Receive Date: 20100714
  Receipt Date: 20070719
  Transmission Date: 20110219
  Serious: No
  Sender: FDA-Public Use
  Company Number: US-PFIZER INC-2007061674

PATIENT
  Sex: Female
  Weight: 90.7 kg

DRUGS (4)
  1. CHANTIX [Suspect]
     Indication: SMOKING CESSATION THERAPY
     Route: 048
     Dates: start: 20070701
  2. LYRICA [Concomitant]
  3. ALL OTHER THERAPEUTIC PRODUCTS [Concomitant]
     Route: 055
  4. ALBUTEROL [Concomitant]
     Route: 055

REACTIONS (1)
  - MIDDLE INSOMNIA [None]
